FAERS Safety Report 9382735 (Version 5)
Quarter: 2014Q2

REPORT INFORMATION
  Report Type: Spontaneous
  Country: US (occurrence: US)
  Receive Date: 20130703
  Receipt Date: 20140613
  Transmission Date: 20141212
  Serious: Yes (Hospitalization, Other)
  Sender: FDA-Public Use
  Company Number: US-009507513-1307USA000523

PATIENT
  Sex: Female
  Weight: 68.27 kg

DRUGS (6)
  1. FOSAMAX [Suspect]
     Indication: PREMATURE MENOPAUSE
     Dosage: UNK, QD
     Route: 048
     Dates: start: 1996
  2. FOSAMAX [Suspect]
     Dosage: 70 MG, QW
     Route: 048
     Dates: end: 20120603
  3. FOSAMAX PLUS D [Suspect]
     Route: 048
  4. ALENDRONATE SODIUM [Suspect]
     Route: 048
  5. CALCIUM (UNSPECIFIED) [Concomitant]
     Indication: PREMATURE MENOPAUSE
     Dosage: 600 DF, UNK
     Dates: start: 1996
  6. VITAMIN D (UNSPECIFIED) [Concomitant]
     Dosage: 2000 DF, UNK
     Dates: start: 1996

REACTIONS (39)
  - Femur fracture [Unknown]
  - Intramedullary rod insertion [Unknown]
  - Gallbladder operation [Unknown]
  - Follicle centre lymphoma, follicular grade I, II, III [Recovering/Resolving]
  - Cholecystectomy [Unknown]
  - Myocardial infarction [Unknown]
  - Adverse event [Unknown]
  - Osteopenia [Unknown]
  - Osteoporosis [Unknown]
  - Stem cell transplant [Unknown]
  - Mass excision [Unknown]
  - Epiglottic mass [Unknown]
  - Vulvovaginal dryness [Unknown]
  - Psoriasis [Unknown]
  - Feeling abnormal [Unknown]
  - Weight increased [Unknown]
  - Libido decreased [Unknown]
  - Fibrocystic breast disease [Unknown]
  - Stent placement [Unknown]
  - Hydronephrosis [Unknown]
  - Hyperlipidaemia [Unknown]
  - Migraine [Unknown]
  - Chronic sinusitis [Unknown]
  - Varicose vein [Unknown]
  - Drug dependence [Unknown]
  - Uterine dilation and curettage [Unknown]
  - Smear cervix abnormal [Unknown]
  - Lymphadenectomy [Unknown]
  - Hypertension [Unknown]
  - Atrophic vulvovaginitis [Unknown]
  - Anxiety disorder [Unknown]
  - Depression [Unknown]
  - Gallbladder disorder [Unknown]
  - Kidney infection [Unknown]
  - Nephrolithiasis [Unknown]
  - Foot fracture [Unknown]
  - Throat irritation [Unknown]
  - Drug ineffective [Unknown]
  - Off label use [Unknown]
